FAERS Safety Report 22635103 (Version 1)
Quarter: 2023Q2

REPORT INFORMATION
  Report Type: Report from Study
  Country: DE (occurrence: DE)
  Receive Date: 20230623
  Receipt Date: 20230623
  Transmission Date: 20230722
  Serious: Yes (Hospitalization)
  Sender: FDA-Public Use
  Company Number: DE-SUN PHARMACEUTICAL INDUSTRIES LTD-2023RR-393633

PATIENT
  Age: 18 Year
  Sex: Female
  Weight: 52.4 kg

DRUGS (3)
  1. SONIDEGIB [Suspect]
     Active Substance: SONIDEGIB
     Indication: Medulloblastoma
     Dosage: 200 MILLIGRAM, DAILY
     Route: 048
     Dates: start: 20230427, end: 20230525
  2. VINCRISTINE [Suspect]
     Active Substance: VINCRISTINE
     Indication: Medulloblastoma
     Dosage: 2 MILLIGRAM EVERY 2 WEEKS
     Route: 042
     Dates: start: 20230427, end: 20230511
  3. POTASSIUM [Concomitant]
     Active Substance: POTASSIUM
     Indication: Hypokalaemia
     Dosage: 600 MILLIGRAM, DAILY
     Route: 065
     Dates: start: 20230527, end: 20230528

REACTIONS (3)
  - Nausea [Recovered/Resolved]
  - Hypotension [Unknown]
  - Dehydration [Unknown]

NARRATIVE: CASE EVENT DATE: 20230525
